FAERS Safety Report 11190533 (Version 1)
Quarter: 2015Q2

REPORT INFORMATION
  Report Type: Report from Study
  Country: US (occurrence: None)
  Receive Date: 20150603
  Receipt Date: 20150603
  Transmission Date: 20150821
  Serious: No
  Sender: FDA-Public Use
  Company Number: 2015TASUS000686

PATIENT
  Age: 43 Year
  Sex: Male
  Weight: 104.3 kg

DRUGS (12)
  1. LISINOPRIL (LISINOPRIL) [Concomitant]
     Active Substance: LISINOPRIL
  2. FLUTICASONE [Concomitant]
     Active Substance: FLUTICASONE\FLUTICASONE PROPIONATE
  3. METFORMIN HCL (METFORMIN HYDROCHLORIDE) [Concomitant]
     Active Substance: METFORMIN HYDROCHLORIDE
  4. HETLIOZ [Suspect]
     Active Substance: TASIMELTEON
     Indication: CIRCADIAN RHYTHM SLEEP DISORDER
     Route: 048
     Dates: start: 20150113
  5. DULERA (FORMOTEROL FUMARATE, MOMETASONE FUROATE) [Concomitant]
  6. OMEPRAZOLE (OMEPRAZOLE) [Concomitant]
     Active Substance: OMEPRAZOLE
  7. ALBUTEROL SULFATE (ALBUTEROL SULFATE) [Concomitant]
  8. SIMVASTATIN (SIMVASTATIN) [Concomitant]
     Active Substance: SIMVASTATIN
  9. PERFOROMIST [Concomitant]
     Active Substance: FORMOTEROL FUMARATE DIHYDRATE
  10. ZOLOFT [Concomitant]
     Active Substance: SERTRALINE HYDROCHLORIDE
  11. HYDROCODONE BITARTRATE AND ACETAMINOPHEN (HYDROCODONE BITARTRATE, PARACETAMOL) [Concomitant]
  12. AZELASTINE (AZELASTINE) (AZELASTINE) [Concomitant]
     Active Substance: AZELASTINE

REACTIONS (8)
  - Abdominal pain upper [None]
  - Middle insomnia [None]
  - Influenza [None]
  - Drug effect decreased [None]
  - Insomnia [None]
  - Somnolence [None]
  - Drug ineffective [None]
  - Incorrect drug administration duration [None]

NARRATIVE: CASE EVENT DATE: 201501
